FAERS Safety Report 10174515 (Version 1)
Quarter: 2014Q2

REPORT INFORMATION
  Report Type: Spontaneous
  Country: US (occurrence: US)
  Receive Date: 20140515
  Receipt Date: 20140515
  Transmission Date: 20141212
  Serious: No
  Sender: FDA-Public Use
  Company Number: US-GILEAD-2014-0102111

PATIENT
  Age: 67 Year
  Sex: Female

DRUGS (22)
  1. LETAIRIS [Suspect]
     Indication: PULMONARY HYPERTENSION
     Dosage: 5 MG, QD
     Route: 065
     Dates: start: 20140419
  2. LASIX                              /00032601/ [Concomitant]
  3. SPIRONOLACTONE [Concomitant]
  4. SIMVASTATIN [Concomitant]
  5. PREDNISONE [Concomitant]
  6. PANTOPRAZOLE [Concomitant]
  7. METOPROLOL [Concomitant]
  8. LISINOPRIL [Concomitant]
  9. LIPITOR [Concomitant]
  10. LIDOCAINE [Concomitant]
  11. LEFLUNOMIDE [Concomitant]
  12. HYDROXYCHLOROQUINE [Concomitant]
  13. HYDROCORTISONE [Concomitant]
  14. GUAIFENESIN [Concomitant]
  15. GABAPENTIN [Concomitant]
  16. FOLIC ACID [Concomitant]
  17. DIFLUCAN [Concomitant]
  18. DILTIAZEM [Concomitant]
  19. TESSALON PERLE [Concomitant]
  20. ALBUTEROL                          /00139501/ [Concomitant]
  21. ASPIRIN [Concomitant]
  22. CENTRUM SILVER                     /02363801/ [Concomitant]

REACTIONS (2)
  - Diarrhoea [Not Recovered/Not Resolved]
  - Oedema peripheral [Recovering/Resolving]
